FAERS Safety Report 20327188 (Version 1)
Quarter: 2022Q1

REPORT INFORMATION
  Report Type: Spontaneous
  Country: CA (occurrence: None)
  Receive Date: 20220112
  Receipt Date: 20220112
  Transmission Date: 20220423
  Serious: Yes (Life-Threatening, Hospitalization, Disabling)
  Sender: FDA-Public Use
  Company Number: CA-ROCHE-2995434

PATIENT
  Age: 69 Year
  Sex: Female
  Weight: 91 kg

DRUGS (16)
  1. ACTEMRA [Suspect]
     Active Substance: TOCILIZUMAB
     Indication: Giant cell arteritis
     Route: 058
  2. ACTEMRA [Concomitant]
     Active Substance: TOCILIZUMAB
     Route: 042
  3. ARANESP [Concomitant]
     Active Substance: DARBEPOETIN ALFA
  4. FUROSEMIDE [Concomitant]
     Active Substance: FUROSEMIDE
  5. MEDROXYPROGESTERONE [Concomitant]
     Active Substance: MEDROXYPROGESTERONE
  6. NOVORAPID [Concomitant]
     Active Substance: INSULIN ASPART
  7. ALFACALCIDOL [Concomitant]
     Active Substance: ALFACALCIDOL
  8. OXAZEPAM [Concomitant]
     Active Substance: OXAZEPAM
  9. PANTOPRAZOLE [Concomitant]
     Active Substance: PANTOPRAZOLE
  10. PREDNISONE [Concomitant]
     Active Substance: PREDNISONE
  11. QUININE [Concomitant]
     Active Substance: QUININE
  12. RISEDRONATE SODIUM [Concomitant]
     Active Substance: RISEDRONATE SODIUM
  13. ROSUVASTATIN [Concomitant]
     Active Substance: ROSUVASTATIN
     Route: 065
  14. SEVELAMER [Concomitant]
     Active Substance: SEVELAMER
  15. TRESIBA [Concomitant]
     Active Substance: INSULIN DEGLUDEC
  16. VITAMIN C [Concomitant]
     Active Substance: ASCORBIC ACID

REACTIONS (5)
  - Anastomotic leak [Recovered/Resolved]
  - Intestinal ischaemia [Recovered/Resolved]
  - Intestinal perforation [Recovered/Resolved]
  - Peritonitis [Recovered/Resolved]
  - Septic shock [Recovered/Resolved]
